FAERS Safety Report 9295786 (Version 1)
Quarter: 2013Q2

REPORT INFORMATION
  Report Type: Spontaneous
  Country: BR (occurrence: BR)
  Receive Date: 20130517
  Receipt Date: 20130517
  Transmission Date: 20140414
  Serious: Yes (Other)
  Sender: FDA-Public Use
  Company Number: BR-PFIZER INC-2013150701

PATIENT
  Age: 21 Year
  Sex: Female

DRUGS (1)
  1. PANTOZOL [Suspect]
     Dosage: 40 MG, UNK
     Route: 042

REACTIONS (1)
  - Tachycardia [Unknown]
